FAERS Safety Report 16566329 (Version 1)
Quarter: 2019Q3

REPORT INFORMATION
  Report Type: Spontaneous
  Country: FR (occurrence: FR)
  Receive Date: 20190712
  Receipt Date: 20190712
  Transmission Date: 20191004
  Serious: Yes (Hospitalization, Other)
  Sender: FDA-Public Use
  Company Number: FR-MYLANLABS-2019M1064713

PATIENT
  Age: 68 Year
  Sex: Female

DRUGS (5)
  1. TERBUTALINE [Suspect]
     Active Substance: TERBUTALINE
     Indication: ASTHMA
     Dosage: INITIAL DOSE
     Route: 055
  2. TERBUTALINE [Suspect]
     Active Substance: TERBUTALINE
     Dosage: TWO NEW SERIES OF THREE AEROSOL DOSES
     Route: 055
  3. IPRATROPIUM [Concomitant]
     Active Substance: IPRATROPIUM
     Dosage: TWO NEW SERIES OF THREE AEROSOL DOSES
     Route: 055
  4. IPRATROPIUM [Concomitant]
     Active Substance: IPRATROPIUM
     Indication: ASTHMA
     Dosage: INITIAL DOSE
     Route: 055
  5. SALBUTAMOL [Suspect]
     Active Substance: ALBUTEROL
     Indication: ASTHMA
     Dosage: RECEIVED AT HOME
     Route: 055

REACTIONS (3)
  - Treatment failure [Unknown]
  - Hyperlactacidaemia [Recovering/Resolving]
  - Metabolic acidosis [Recovering/Resolving]
